FAERS Safety Report 5164910-2 (Version None)
Quarter: 2006Q4

REPORT INFORMATION
  Report Type: 
  Country: None (occurrence: None)
  Receive Date: 20061205
  Receipt Date: 20061115
  Transmission Date: 20070319
  Serious: Yes (Hospitalization)
  Sender: FDA-Public Use
  Company Number: JP-ELI_LILLY_AND_COMPANY-JP200611003300

PATIENT
  Age: 68 Year
  Sex: Female

DRUGS (3)
  1. EVISTA [Suspect]
     Indication: OSTEOPOROSIS
     Dosage: UNK, UNK
     Route: 048
     Dates: start: 20050323, end: 20061115
  2. MEVALOTIN                               /JPN/ [Concomitant]
     Dosage: 5 MG, DAILY (1/D)
     Route: 048
  3. DEPAS [Concomitant]
     Route: 048

REACTIONS (4)
  - BILE DUCT STONE [None]
  - CHOLANGITIS [None]
  - JAUNDICE CHOLESTATIC [None]
  - PORTAL VEIN THROMBOSIS [None]
